FAERS Safety Report 25021203 (Version 1)
Quarter: 2025Q1

REPORT INFORMATION
  Report Type: Spontaneous
  Country: RU (occurrence: RU)
  Receive Date: 20250228
  Receipt Date: 20250228
  Transmission Date: 20250409
  Serious: Yes (Other)
  Sender: SANDOZ
  Company Number: None

PATIENT
  Sex: Male

DRUGS (2)
  1. METHOTREXATE [Suspect]
     Active Substance: METHOTREXATE
     Indication: Ankylosing spondylitis
     Dosage: 15 MG, QW, 15 MG ONCE A WEEK WITH DOSE INCREASE TO  17.5 MG PER WEEK FROM 27/01/2025
     Route: 058
     Dates: start: 20241223, end: 20250127
  2. METHOTREXATE [Suspect]
     Active Substance: METHOTREXATE
     Dosage: 17.5 MG, QW, 15 MG ONCE A WEEK WITH DOSE INCREASE TO  17.5 MG PER WEEK FROM 27/01/2025
     Route: 058
     Dates: start: 20250127

REACTIONS (5)
  - Dyspepsia [Recovering/Resolving]
  - Flatulence [Recovering/Resolving]
  - Aphthous ulcer [Recovering/Resolving]
  - Nausea [Recovering/Resolving]
  - Diarrhoea [Recovering/Resolving]

NARRATIVE: CASE EVENT DATE: 20250128
